FAERS Safety Report 18987845 (Version 5)
Quarter: 2022Q3

REPORT INFORMATION
  Report Type: Report from Study
  Country: JP (occurrence: JP)
  Receive Date: 20210309
  Receipt Date: 20220907
  Transmission Date: 20221027
  Serious: Yes (Death, Life-Threatening, Other)
  Sender: FDA-Public Use
  Company Number: JP-KYOWAKIRIN-2020AKK010168

PATIENT
  Age: 79 Year
  Sex: Male

DRUGS (16)
  1. ROMIPLOSTIM [Suspect]
     Active Substance: ROMIPLOSTIM
     Indication: Aplastic anaemia
     Dosage: 500 MICROGRAM, QWK
     Route: 058
     Dates: start: 20190906, end: 20191025
  2. ROMIPLOSTIM [Suspect]
     Active Substance: ROMIPLOSTIM
     Dosage: 250 MICROGRAM, QWK
     Route: 058
     Dates: start: 20191101, end: 20191129
  3. ROMIPLOSTIM [Suspect]
     Active Substance: ROMIPLOSTIM
     Dosage: 500 MICROGRAM, QWK
     Route: 058
     Dates: start: 20191206, end: 20191213
  4. ROMIPLOSTIM [Suspect]
     Active Substance: ROMIPLOSTIM
     Dosage: 750 MICROGRAM, QWK
     Route: 058
     Dates: start: 20191220, end: 20200424
  5. SOLU-CORTEF [Concomitant]
     Active Substance: HYDROCORTISONE SODIUM SUCCINATE
     Indication: Product used for unknown indication
     Dosage: UNK
     Route: 065
  6. POLARAMINE [Concomitant]
     Active Substance: DEXCHLORPHENIRAMINE MALEATE
     Indication: Product used for unknown indication
     Dosage: UNK
     Route: 065
  7. FEBUXOSTAT [Concomitant]
     Active Substance: FEBUXOSTAT
     Indication: Product used for unknown indication
     Dosage: UNK
     Route: 048
  8. RABEPRAZOLE SODIUM [Concomitant]
     Active Substance: RABEPRAZOLE SODIUM
     Indication: Product used for unknown indication
     Dosage: UNK
     Route: 048
  9. AMOXICILLIN [Concomitant]
     Active Substance: AMOXICILLIN
     Indication: Product used for unknown indication
     Dosage: UNK
     Route: 048
  10. JADENU [Concomitant]
     Active Substance: DEFERASIROX
     Indication: Product used for unknown indication
     Dosage: UNK
     Route: 048
  11. FLUCONAZOLE [Concomitant]
     Active Substance: FLUCONAZOLE
     Indication: Product used for unknown indication
     Dosage: UNK
     Route: 048
  12. AUGMENTIN [Concomitant]
     Active Substance: AMOXICILLIN\CLAVULANATE POTASSIUM
     Indication: Product used for unknown indication
     Dosage: UNK
     Route: 048
  13. FUROSEMIDE [Concomitant]
     Active Substance: FUROSEMIDE
     Indication: Chronic kidney disease
     Dosage: UNK
     Route: 048
  14. ZOLPIDEM TARTRATE [Concomitant]
     Active Substance: ZOLPIDEM TARTRATE
     Indication: Product used for unknown indication
     Dosage: UNK
     Route: 048
  15. CYANOCOBALAMIN\PYRIDOXINE HYDROCHLORIDE\THIAMINE [Concomitant]
     Active Substance: CYANOCOBALAMIN\PYRIDOXINE HYDROCHLORIDE\THIAMINE
     Indication: Product used for unknown indication
     Dosage: UNK
     Route: 042
  16. OMEPRAZOLE [Concomitant]
     Active Substance: OMEPRAZOLE
     Indication: Product used for unknown indication
     Dosage: UNK
     Route: 065

REACTIONS (5)
  - Transformation to acute myeloid leukaemia [Not Recovered/Not Resolved]
  - Pneumonia aspiration [Fatal]
  - Internal haemorrhage [Recovering/Resolving]
  - Fall [Recovered/Resolved]
  - Contusion [Recovering/Resolving]

NARRATIVE: CASE EVENT DATE: 20200501
